FAERS Safety Report 16427528 (Version 2)
Quarter: 2019Q3

REPORT INFORMATION
  Report Type: Report from Study
  Country: CA (occurrence: CA)
  Receive Date: 20190613
  Receipt Date: 20190709
  Transmission Date: 20191004
  Serious: Yes (Other)
  Sender: FDA-Public Use
  Company Number: PHHY2018CA067316

PATIENT
  Age: 81 Year
  Sex: Male

DRUGS (3)
  1. SANDOSTATIN LAR DEPOT [Suspect]
     Active Substance: OCTREOTIDE ACETATE
     Indication: CARCINOID TUMOUR
     Dosage: 30 MG, QMO
     Route: 030
     Dates: start: 20180313
  2. GLUCOPHAGE [Concomitant]
     Active Substance: METFORMIN HYDROCHLORIDE
     Indication: PRODUCT USED FOR UNKNOWN INDICATION
     Dosage: 1000 MG, BID
     Route: 065
     Dates: start: 20180904
  3. DIABETA [Concomitant]
     Active Substance: GLYBURIDE
     Indication: PRODUCT USED FOR UNKNOWN INDICATION
     Dosage: 5 MG, BID
     Route: 065
     Dates: start: 20180904

REACTIONS (18)
  - Loss of consciousness [Recovered/Resolved]
  - Blood pressure increased [Unknown]
  - Osteoarthritis [Unknown]
  - Dizziness [Recovered/Resolved]
  - Humerus fracture [Recovering/Resolving]
  - Metastasis [Unknown]
  - Metastases to liver [Unknown]
  - Headache [Unknown]
  - Metastases to lung [Unknown]
  - Metastases to pancreas [Unknown]
  - Reflux gastritis [Unknown]
  - Abdominal pain upper [Unknown]
  - Hordeolum [Unknown]
  - Bursitis [Unknown]
  - Hypoglycaemia [Unknown]
  - Vision blurred [Unknown]
  - Fatigue [Unknown]
  - Dyspnoea [Recovered/Resolved]

NARRATIVE: CASE EVENT DATE: 2018
